FAERS Safety Report 7283589-7 (Version None)
Quarter: 2011Q1

REPORT INFORMATION
  Report Type: 
  Country: None (occurrence: None)
  Receive Date: 20110209
  Receipt Date: 20110204
  Transmission Date: 20110831
  Serious: Yes (Hospitalization, Congenital Anomaly)
  Sender: FDA-Public Use
  Company Number: A0912322A

PATIENT
  Sex: Female

DRUGS (2)
  1. PAXIL [Suspect]
     Indication: ANXIETY
     Dosage: 20MG PER DAY
     Route: 065
     Dates: start: 20051208
  2. VICODIN [Concomitant]
     Route: 064

REACTIONS (19)
  - RETINAL ANOMALY CONGENITAL [None]
  - THROMBOCYTOPENIA [None]
  - ILIAC VEIN OCCLUSION [None]
  - HEMIHYPERTROPHY [None]
  - COARCTATION OF THE AORTA [None]
  - DRUG EXPOSURE DURING PREGNANCY [None]
  - CONVULSION [None]
  - BICUSPID AORTIC VALVE [None]
  - CONGENITAL AORTIC VALVE STENOSIS [None]
  - DYSMORPHISM [None]
  - FEMORAL ARTERY OCCLUSION [None]
  - TORTICOLLIS [None]
  - ATRIAL SEPTAL DEFECT [None]
  - MICROCEPHALY [None]
  - SUPRAVALVULAR AORTIC STENOSIS [None]
  - PATENT DUCTUS ARTERIOSUS [None]
  - CEREBROVASCULAR ACCIDENT [None]
  - INTRAVENTRICULAR HAEMORRHAGE NEONATAL [None]
  - ILIAC ARTERY OCCLUSION [None]
